FAERS Safety Report 5703595-0 (Version None)
Quarter: 2008Q2

REPORT INFORMATION
  Report Type: 
  Country: None (occurrence: None)
  Receive Date: 20080411
  Receipt Date: 20080403
  Transmission Date: 20081010
  Serious: Yes (Hospitalization, Other)
  Sender: FDA-Public Use
  Company Number: FR-ABBOTT-08P-056-0445806-00

PATIENT
  Age: 47 Year
  Sex: Male

DRUGS (3)
  1. KALETRA [Suspect]
     Indication: HIV INFECTION
     Route: 048
     Dates: start: 20070501
  2. LAMIVUDINE + ZIDOVUDINE [Suspect]
     Indication: HIV INFECTION
     Route: 048
     Dates: start: 20070501, end: 20080301
  3. EMTRICITABINE W/TENOFOVIR [Concomitant]
     Indication: DRUG USE FOR UNKNOWN INDICATION
     Route: 048
     Dates: start: 20080101

REACTIONS (11)
  - ASTHENIA [None]
  - BRONCHITIS [None]
  - CENTRAL-ALVEOLAR HYPOVENTILATION [None]
  - DYSPNOEA [None]
  - FATIGUE [None]
  - GENERAL PHYSICAL CONDITION ABNORMAL [None]
  - LYMPHADENOPATHY [None]
  - NEUROMYOPATHY [None]
  - PAIN [None]
  - RESPIRATORY FAILURE [None]
  - WEIGHT DECREASED [None]
